FAERS Safety Report 14968807 (Version 1)
Quarter: 2018Q2

REPORT INFORMATION
  Report Type: Spontaneous
  Country: BR (occurrence: BR)
  Receive Date: 20180604
  Receipt Date: 20180604
  Transmission Date: 20180711
  Serious: Yes (Other)
  Sender: FDA-Public Use
  Company Number: BR-PFIZER INC-2018190113

PATIENT
  Age: 65 Year
  Sex: Female

DRUGS (5)
  1. PRISTIQ EXTENDED-RELEASE [Suspect]
     Active Substance: DESVENLAFAXINE SUCCINATE
     Indication: DECREASED INTEREST
     Dosage: 100 MG, 1 TABLET A DAY
     Dates: start: 2017, end: 2018
  2. PRISTIQ EXTENDED-RELEASE [Suspect]
     Active Substance: DESVENLAFAXINE SUCCINATE
     Dosage: 50 MG, 1 TABLET A DAY
     Dates: start: 2018
  3. CALCIUM [Concomitant]
     Active Substance: CALCIUM
     Dosage: UNK
     Dates: start: 2015
  4. PRISTIQ EXTENDED-RELEASE [Suspect]
     Active Substance: DESVENLAFAXINE SUCCINATE
     Indication: FEELING ABNORMAL
     Dosage: 50 MG, 1 TABLET A DAY
     Dates: start: 201703, end: 2017
  5. VASOPRIL /00574902/ [Concomitant]
     Dosage: UNK
     Dates: end: 201801

REACTIONS (12)
  - Disorientation [Recovered/Resolved]
  - Hypertension [Not Recovered/Not Resolved]
  - Drug prescribing error [Recovered/Resolved]
  - Wrong technique in product usage process [Recovered/Resolved]
  - Drug ineffective for unapproved indication [Not Recovered/Not Resolved]
  - Withdrawal syndrome [Not Recovered/Not Resolved]
  - Dizziness [Unknown]
  - Drug dependence [Not Recovered/Not Resolved]
  - Head discomfort [Recovered/Resolved]
  - Tinnitus [Recovered/Resolved]
  - Drug dose omission [Recovered/Resolved]
  - Intentional dose omission [Recovered/Resolved]

NARRATIVE: CASE EVENT DATE: 2017
